FAERS Safety Report 7743553-8 (Version None)
Quarter: 2011Q3

REPORT INFORMATION
  Report Type: 
  Country: None (occurrence: None)
  Receive Date: 20110912
  Receipt Date: 20110906
  Transmission Date: 20111222
  Serious: Yes (Other)
  Sender: FDA-Public Use
  Company Number: US-PFIZER INC-2011209366

PATIENT
  Sex: Female

DRUGS (5)
  1. ADRIAMYCIN PFS [Suspect]
     Indication: BREAST CANCER
     Dosage: 110 MG, UNK
     Route: 042
     Dates: start: 20100309, end: 20100513
  2. CYTOXAN [Suspect]
     Indication: BREAST CANCER
     Dosage: 1092 MG, UNK
     Route: 042
     Dates: start: 20100309, end: 20100513
  3. ACETAMINOPHEN AND HYDROCODONE BITARTRATE [Concomitant]
  4. IXABEPILONE [Suspect]
     Indication: BREAST CANCER
     Dosage: 58 MG, UNK
     Route: 042
     Dates: start: 20100603, end: 20100812
  5. BENICAR HCT [Concomitant]

REACTIONS (1)
  - OSTEONECROSIS [None]
